FAERS Safety Report 16282299 (Version 1)
Quarter: 2019Q2

REPORT INFORMATION
  Report Type: Spontaneous
  Country: US (occurrence: US)
  Receive Date: 20190507
  Receipt Date: 20190507
  Transmission Date: 20190711
  Serious: No
  Sender: FDA-Public Use
  Company Number: US-NOVAST LABORATORIES, LTD-US-2019NOV000134

PATIENT
  Age: 14 Year
  Sex: Female
  Weight: 46.71 kg

DRUGS (1)
  1. LARIN 1.5/30 [Suspect]
     Active Substance: ETHINYL ESTRADIOL\NORETHINDRONE ACETATE
     Indication: PRODUCT USED FOR UNKNOWN INDICATION
     Dosage: 1 DF, QD
     Route: 048
     Dates: start: 20190303

REACTIONS (3)
  - Nausea [Unknown]
  - Vomiting [Unknown]
  - Migraine [Unknown]

NARRATIVE: CASE EVENT DATE: 201903
